FAERS Safety Report 5821491-5 (Version None)
Quarter: 2008Q3

REPORT INFORMATION
  Report Type: 
  Country: None (occurrence: None)
  Receive Date: 20080724
  Receipt Date: 20080713
  Transmission Date: 20090109
  Serious: Yes (Other)
  Sender: FDA-Public Use
  Company Number: DE-JNJFOC-20080603187

PATIENT
  Sex: Male
  Weight: 83 kg

DRUGS (3)
  1. REMICADE [Suspect]
     Indication: PSORIASIS
     Route: 042
  2. METHOTREXATE [Concomitant]
     Indication: PSORIASIS
     Route: 058
  3. FOLSAN [Concomitant]
     Indication: PSORIASIS

REACTIONS (1)
  - ARTHRITIS REACTIVE [None]
